FAERS Safety Report 9952112 (Version 1)
Quarter: 2014Q1

REPORT INFORMATION
  Report Type: Report from Study
  Country: US (occurrence: US)
  Receive Date: 20140304
  Receipt Date: 20140304
  Transmission Date: 20141002
  Serious: No
  Sender: FDA-Public Use
  Company Number: US-ABBVIE-13P-163-1070391-00

PATIENT
  Age: 49 Year
  Sex: Male

DRUGS (9)
  1. HUMIRA [Suspect]
     Indication: PSORIASIS
     Route: 058
     Dates: start: 20130131
  2. VICODIN [Concomitant]
     Indication: JOINT DESTRUCTION
  3. FLEXERIL [Concomitant]
     Indication: MUSCLE RELAXANT THERAPY
     Dosage: 3 TIMES DAILY
  4. TOPROLOL [Concomitant]
     Indication: HYPERTENSION
     Dosage: DAILY
  5. NEXIUM [Concomitant]
     Indication: GASTROOESOPHAGEAL REFLUX DISEASE
     Dosage: DAILY
  6. GABAPENTIN [Concomitant]
     Indication: NERVOUS SYSTEM DISORDER
     Dosage: 1 PILL IN MORNING, 2 PILLS AT NIGHT
  7. PLAVIX [Concomitant]
     Indication: CARDIOVASCULAR INSUFFICIENCY
     Dosage: DAILY
  8. CITALOPRAM [Concomitant]
     Indication: ANTIDEPRESSANT THERAPY
     Dosage: AT BEDTIME
  9. ETODOLAC [Concomitant]
     Indication: ARTHRALGIA
     Dosage: DAILY

REACTIONS (1)
  - Nasopharyngitis [Not Recovered/Not Resolved]
